FAERS Safety Report 8060379-9 (Version None)
Quarter: 2012Q1

REPORT INFORMATION
  Report Type: 
  Country: None (occurrence: None)
  Receive Date: 20120120
  Receipt Date: 20120116
  Transmission Date: 20120608
  Serious: Yes (Other)
  Sender: FDA-Public Use
  Company Number: US-TEVA-318191USA

PATIENT
  Age: 69 Year
  Sex: Female

DRUGS (3)
  1. NICOTINIC ACID [Interacting]
     Dosage: 1000 MILLIGRAM; EXTENDED-RELEASE
     Dates: start: 20091101
  2. WARFARIN SODIUM [Suspect]
     Indication: ANTICOAGULANT THERAPY
     Dosage: 2.5 MILLIGRAM;
     Dates: start: 20080201
  3. NICOTINIC ACID [Interacting]
     Dosage: 500 MILLIGRAM; EXTENDED-RELEASE
     Dates: start: 20090701, end: 20091101

REACTIONS (2)
  - DRUG INTERACTION [None]
  - INTERNATIONAL NORMALISED RATIO INCREASED [None]
